FAERS Safety Report 10975362 (Version 1)
Quarter: 2015Q1

REPORT INFORMATION
  Report Type: Spontaneous
  Country: US (occurrence: None)
  Receive Date: 20150226
  Receipt Date: 20150226
  Transmission Date: 20150721
  Serious: No
  Sender: FDA-Public Use
  Company Number: TPA2009A01724

PATIENT
  Age: 75 Year
  Sex: Female
  Weight: 86.64 kg

DRUGS (14)
  1. NIFEREX (POLYSACCHARIDE-IRON COMPLEX) [Concomitant]
     Active Substance: IRON\POLYSACCHARIDES
  2. ALPHAGAN OPTHALMIC (BRIMONIDINE TARTRATE) [Concomitant]
  3. TEKTURNA (ALL OTHER NON-THERAPEUTIC PRODUCTS) [Concomitant]
  4. VITAMINS-START MULTIVITAMINS (VITAMINS) [Concomitant]
  5. PLAVIX [Concomitant]
     Active Substance: CLOPIDOGREL BISULFATE
  6. ALDACTONE [Concomitant]
     Active Substance: SPIRONOLACTONE
  7. COLCHICINE. [Concomitant]
     Active Substance: COLCHICINE
  8. LASIX [Concomitant]
     Active Substance: FUROSEMIDE
  9. LIPITOR [Concomitant]
     Active Substance: ATORVASTATIN CALCIUM
  10. LEXAPRO [Concomitant]
     Active Substance: ESCITALOPRAM OXALATE
  11. PROCRIT (ERYTHROPOIETIN) [Concomitant]
  12. HECTOROL (DOXERCALCIFEROL) [Concomitant]
  13. ULORIC [Suspect]
     Active Substance: FEBUXOSTAT
     Indication: BLOOD URIC ACID INCREASED
     Route: 048
     Dates: start: 2009, end: 20090705
  14. COLCHICINE. [Concomitant]
     Active Substance: COLCHICINE

REACTIONS (1)
  - Gout [None]

NARRATIVE: CASE EVENT DATE: 20090701
